FAERS Safety Report 4725849-7 (Version None)
Quarter: 2005Q3

REPORT INFORMATION
  Report Type: 
  Country: None (occurrence: None)
  Receive Date: 20050725
  Receipt Date: 20050725
  Transmission Date: 20060218
  Serious: Yes (Hospitalization)
  Sender: FDA-Public Use
  Company Number: None

PATIENT
  Age: 57 Year
  Sex: Male
  Weight: 87 kg

DRUGS (8)
  1. WARFARIN  5 MG TAB [Suspect]
     Indication: ATRIAL FIBRILLATION
     Dosage: SEE B#5  ORAL
     Route: 048
  2. ENOXAPARIN SODIUM [Suspect]
     Indication: ATRIAL FIBRILLATION
     Dosage: 80 MG BID SUBCUTANEOUS
     Route: 058
     Dates: start: 20040413, end: 20040415
  3. TYLENOL (CAPLET) [Concomitant]
  4. DIGOXIN [Concomitant]
  5. LISINOPRIL [Concomitant]
  6. METOPROLOL [Concomitant]
  7. NTG SL [Concomitant]
  8. OMEPRAZOLE [Concomitant]

REACTIONS (7)
  - ASTHENIA [None]
  - HAEMATOMA [None]
  - HYPOTENSION [None]
  - PAIN [None]
  - PALLOR [None]
  - POST PROCEDURAL HAEMORRHAGE [None]
  - SWELLING [None]
